FAERS Safety Report 10160546 (Version 2)
Quarter: 2014Q2

REPORT INFORMATION
  Report Type: Spontaneous
  Country: US (occurrence: US)
  Receive Date: 20140508
  Receipt Date: 20140521
  Transmission Date: 20141212
  Serious: No
  Sender: FDA-Public Use
  Company Number: US-009507513-1405USA004428

PATIENT
  Age: 61 Year
  Sex: Female
  Weight: 49.21 kg

DRUGS (2)
  1. OXYTROL FOR WOMEN [Suspect]
     Indication: HYPERTONIC BLADDER
     Dosage: 1 DF, Q4D
     Route: 062
     Dates: start: 20140410
  2. OXYTROL FOR WOMEN [Suspect]
     Indication: INCONTINENCE

REACTIONS (2)
  - Dizziness [Recovering/Resolving]
  - Drug ineffective [Recovered/Resolved]
